FAERS Safety Report 15738280 (Version 1)
Quarter: 2018Q4

REPORT INFORMATION
  Report Type: Spontaneous
  Country: US (occurrence: US)
  Receive Date: 20181219
  Receipt Date: 20181219
  Transmission Date: 20190205
  Serious: No
  Sender: FDA-Public Use
  Company Number: US-009507513-1812USA000149

PATIENT
  Sex: Female

DRUGS (1)
  1. NEXPLANON [Suspect]
     Active Substance: ETONOGESTREL
     Dosage: 3 YEARS
     Route: 059

REACTIONS (4)
  - Fatigue [Not Recovered/Not Resolved]
  - Dizziness [Not Recovered/Not Resolved]
  - Weight increased [Not Recovered/Not Resolved]
  - Back pain [Not Recovered/Not Resolved]
